FAERS Safety Report 6703231-0 (Version None)
Quarter: 2010Q2

REPORT INFORMATION
  Report Type: 
  Country: None (occurrence: None)
  Receive Date: 20100430
  Receipt Date: 20100420
  Transmission Date: 20101027
  Serious: Yes (Hospitalization)
  Sender: FDA-Public Use
  Company Number: US-ABBOTT-10P-163-0639770-00

PATIENT
  Sex: Male
  Weight: 81.266 kg

DRUGS (6)
  1. HUMIRA [Suspect]
     Indication: CROHN'S DISEASE
     Dates: start: 20060101, end: 20090101
  2. HUMIRA [Suspect]
     Dates: start: 20090101
  3. IMURAN [Concomitant]
     Indication: CROHN'S DISEASE
  4. IRON [Concomitant]
     Indication: ANAEMIA
  5. CELEBREX [Concomitant]
     Indication: RHEUMATOID ARTHRITIS
  6. MULTIPLE VITAMINS [Concomitant]
     Indication: VITAMIN SUPPLEMENTATION

REACTIONS (3)
  - INTESTINAL FUNCTIONAL DISORDER [None]
  - PAPILLOMA [None]
  - TONGUE BLISTERING [None]
